FAERS Safety Report 20867151 (Version 1)
Quarter: 2022Q2

REPORT INFORMATION
  Report Type: Spontaneous
  Country: ES (occurrence: None)
  Receive Date: 20220524
  Receipt Date: 20220524
  Transmission Date: 20220721
  Serious: Yes (Other)
  Sender: FDA-Public Use
  Company Number: 2022A191003

PATIENT
  Age: 65 Year
  Sex: Female
  Weight: 47.9 kg

DRUGS (4)
  1. TAGRISSO [Suspect]
     Active Substance: OSIMERTINIB
     Indication: Lung adenocarcinoma stage IV
     Dosage: NO DOSE REDUCTIONS
     Route: 048
     Dates: start: 20200904
  2. CALCIUM CARBONATE [Concomitant]
     Active Substance: CALCIUM CARBONATE
     Route: 065
  3. HYDROFEROL [Concomitant]
     Route: 048
     Dates: start: 20211027
  4. ZOMETA [Concomitant]
     Active Substance: ZOLEDRONIC ACID
     Dosage: EVERY 3-4 WEEKS
     Route: 065

REACTIONS (2)
  - Vision blurred [Unknown]
  - Diplopia [Unknown]

NARRATIVE: CASE EVENT DATE: 20200101
